FAERS Safety Report 17923666 (Version 1)
Quarter: 2020Q2

REPORT INFORMATION
  Report Type: Spontaneous
  Country: ES (occurrence: ES)
  Receive Date: 20200622
  Receipt Date: 20200622
  Transmission Date: 20200714
  Serious: Yes (Death, Hospitalization)
  Sender: FDA-Public Use
  Company Number: ES-ROCHE-2622388

PATIENT
  Age: 62 Year
  Sex: Male

DRUGS (2)
  1. ROACTEMRA [Suspect]
     Active Substance: TOCILIZUMAB
     Indication: COVID-19
     Route: 042
     Dates: start: 20200329, end: 20200329
  2. ENOXAPARINA [Concomitant]
     Active Substance: ENOXAPARIN
     Indication: THROMBOSIS PROPHYLAXIS
     Dosage: 40MG CADA 12 HORAS
     Route: 058
     Dates: start: 20200330

REACTIONS (3)
  - Pulmonary embolism [Fatal]
  - Hypofibrinogenaemia [Not Recovered/Not Resolved]
  - Hypocoagulable state [Not Recovered/Not Resolved]

NARRATIVE: CASE EVENT DATE: 20200330
